FAERS Safety Report 25675257 (Version 1)
Quarter: 2025Q3

REPORT INFORMATION
  Report Type: Report from Study
  Country: US (occurrence: US)
  Receive Date: 20250813
  Receipt Date: 20250813
  Transmission Date: 20251020
  Serious: No
  Sender: SUNOVION
  Company Number: US-SMPA-2025SPA010166

PATIENT
  Age: 61 Year
  Sex: Male

DRUGS (9)
  1. ORGOVYX [Suspect]
     Active Substance: RELUGOLIX
     Indication: Prostate cancer
     Route: 048
  2. ORGOVYX [Suspect]
     Active Substance: RELUGOLIX
     Route: 048
  3. ABIRATERONE ACETATE [Concomitant]
     Active Substance: ABIRATERONE ACETATE
  4. LOSARTAN POTASSIUM [Concomitant]
     Active Substance: LOSARTAN POTASSIUM
  5. LYRICA [Concomitant]
     Active Substance: PREGABALIN
     Route: 048
  6. NEUPRO [Concomitant]
     Active Substance: ROTIGOTINE
     Route: 062
  7. PREDNISONE [Concomitant]
     Active Substance: PREDNISONE
  8. ROPINIROLE [Concomitant]
     Active Substance: ROPINIROLE
  9. TAMSULOSIN HYDROCHLORIDE [Concomitant]
     Active Substance: TAMSULOSIN HYDROCHLORIDE

REACTIONS (1)
  - Fatigue [Unknown]
